FAERS Safety Report 21620155 (Version 2)
Quarter: 2022Q4

REPORT INFORMATION
  Report Type: Report from Study
  Country: TW (occurrence: TW)
  Receive Date: 20221121
  Receipt Date: 20221128
  Transmission Date: 20230113
  Serious: Yes (Hospitalization)
  Sender: FDA-Public Use
  Company Number: TW-BIOGEN-2022BI01169583

PATIENT
  Age: 3 Year
  Sex: Male

DRUGS (1)
  1. SPINRAZA [Suspect]
     Active Substance: NUSINERSEN
     Indication: Spinal muscular atrophy
     Dosage: 4 LOADING DOSES ON DAY 0, 14, 28, AND 63. MAINTENANCE DOSE ADMINISTERED ONCE EVERY 4 MONTHS THERE...
     Route: 050
     Dates: start: 20220531

REACTIONS (2)
  - Gastroenteritis [Recovered/Resolved]
  - Pneumonia [Recovered/Resolved]

NARRATIVE: CASE EVENT DATE: 20221111
